FAERS Safety Report 8890890 (Version 5)
Quarter: 2014Q4

REPORT INFORMATION
  Report Type: Report from Study
  Country: AU (occurrence: AU)
  Receive Date: 20121107
  Receipt Date: 20141226
  Transmission Date: 20150529
  Serious: Yes (Hospitalization, Other)
  Sender: FDA-Public Use
  Company Number: PHHY2012AU084777

PATIENT
  Age: 56 Year
  Sex: Male
  Weight: 180 kg

DRUGS (1)
  1. CLOZARIL [Suspect]
     Active Substance: CLOZAPINE
     Indication: SCHIZOPHRENIA
     Dosage: 300 MG
     Route: 048
     Dates: start: 20051213

REACTIONS (7)
  - Pneumonia [Recovering/Resolving]
  - Schizophrenia [Unknown]
  - White blood cell count increased [Recovered/Resolved]
  - Sleep apnoea syndrome [Unknown]
  - Intestinal obstruction [Unknown]
  - Obesity [Unknown]
  - Neutrophil count increased [Recovered/Resolved]

NARRATIVE: CASE EVENT DATE: 20070608
